FAERS Safety Report 8720330 (Version 2)
Quarter: 2012Q4

REPORT INFORMATION
  Report Type: 
  Country: ES (occurrence: ES)
  Receive Date: 20120813
  Receipt Date: 20120926
  Transmission Date: 20130627
  Serious: Yes (Hospitalization)
  Sender: FDA-Public Use
  Company Number: ES-ELI_LILLY_AND_COMPANY-ES201208002205

PATIENT
  Age: 79 Year
  Sex: Female
  Weight: 53 kg

DRUGS (8)
  1. FORSTEO [Suspect]
     Indication: OSTEOPOROSIS
     Dosage: 20 ug, qd
     Route: 058
     Dates: start: 20120712
  2. PARACETAMOL [Concomitant]
     Indication: PAIN
     Dosage: UNK, tid
     Route: 048
  3. NOLOTIL [Concomitant]
     Indication: PAIN
     Dosage: UNK, prn
     Route: 048
  4. SPIRIVA [Concomitant]
     Dosage: UNK
  5. OMEPRAZOL [Concomitant]
     Indication: PROPHYLAXIS
     Dosage: 20 mg, qd
     Route: 048
  6. IDEOS [Concomitant]
     Indication: MINERAL SUPPLEMENTATION
     Dosage: UNK, prn
     Route: 048
  7. ACETILCISTEINA [Concomitant]
     Indication: RESPIRATORY FAILURE
     Dosage: 1 DF, qd
     Route: 048
  8. VENTOLIN                           /00139502/ [Concomitant]
     Indication: RESPIRATORY FAILURE
     Dosage: UNK, prn

REACTIONS (1)
  - Joint dislocation [Recovered/Resolved]
